FAERS Safety Report 8551763-5 (Version None)
Quarter: 2012Q3

REPORT INFORMATION
  Report Type: 
  Country: None (occurrence: None)
  Receive Date: 20120730
  Receipt Date: 20120725
  Transmission Date: 20120928
  Serious: Yes (Other)
  Sender: FDA-Public Use
  Company Number: US-PFIZER INC-2012145184

PATIENT
  Sex: Female

DRUGS (1)
  1. IBUPROFEN (ADVIL) [Suspect]
     Indication: PAIN
     Dosage: 200 MG, AS NEEDED

REACTIONS (3)
  - PRODUCT ODOUR ABNORMAL [None]
  - POOR QUALITY DRUG ADMINISTERED [None]
  - SURGERY [None]
